FAERS Safety Report 4980492-X (Version None)
Quarter: 2006Q2

REPORT INFORMATION
  Report Type: 
  Country: None (occurrence: None)
  Receive Date: 20060424
  Receipt Date: 20060412
  Transmission Date: 20061013
  Serious: Yes (Other)
  Sender: FDA-Public Use
  Company Number: US-SANOFI-SYNTHELABO-A03200602303

PATIENT
  Sex: Male

DRUGS (2)
  1. AMBIEN [Suspect]
     Indication: INSOMNIA
     Route: 048
  2. AMBIEN [Suspect]
     Dosage: 5 MG AND THEN ANOTHER 5 MG LATER OM
     Route: 048

REACTIONS (7)
  - AMNESIA [None]
  - DRUG INEFFECTIVE [None]
  - EXCORIATION [None]
  - IMPAIRED DRIVING ABILITY [None]
  - MENTAL DISORDER [None]
  - ROAD TRAFFIC ACCIDENT [None]
  - SLEEP WALKING [None]
